FAERS Safety Report 22291535 (Version 2)
Quarter: 2023Q2

REPORT INFORMATION
  Report Type: Spontaneous
  Country: JP (occurrence: JP)
  Receive Date: 20230506
  Receipt Date: 20230613
  Transmission Date: 20230722
  Serious: Yes (Other)
  Sender: FDA-Public Use
  Company Number: JP-BAYER-2023A060328

PATIENT
  Age: 54 Year
  Sex: Male
  Weight: 67.9 kg

DRUGS (9)
  1. RIVAROXABAN [Suspect]
     Active Substance: RIVAROXABAN
     Indication: Atrial fibrillation
     Dosage: DAILY DOSE 15MG
     Route: 048
     Dates: start: 20220729, end: 20230314
  2. VALSARTAN [Concomitant]
     Active Substance: VALSARTAN
  3. URSODIOL [Concomitant]
     Active Substance: URSODIOL
  4. PEMAFIBRATE [Concomitant]
     Active Substance: PEMAFIBRATE
  5. BISOPROLOL [Concomitant]
     Active Substance: BISOPROLOL
  6. SPIRONOLACTONE [Concomitant]
     Active Substance: SPIRONOLACTONE
  7. AZOSEMIDE [Concomitant]
     Active Substance: AZOSEMIDE
  8. TOLVAPTAN [Concomitant]
     Active Substance: TOLVAPTAN
  9. DAPAGLIFLOZIN [Concomitant]
     Active Substance: DAPAGLIFLOZIN

REACTIONS (3)
  - Interstitial lung disease [Not Recovered/Not Resolved]
  - Dyspnoea exertional [Unknown]
  - KL-6 increased [Unknown]

NARRATIVE: CASE EVENT DATE: 20230313
